FAERS Safety Report 17370308 (Version 6)
Quarter: 2022Q4

REPORT INFORMATION
  Report Type: Spontaneous
  Country: JP (occurrence: JP)
  Receive Date: 20200205
  Receipt Date: 20221110
  Transmission Date: 20230112
  Serious: Yes (Other)
  Sender: FDA-Public Use
  Company Number: None

PATIENT
  Age: 68 Year
  Sex: Female

DRUGS (6)
  1. XYZAL [Suspect]
     Active Substance: LEVOCETIRIZINE DIHYDROCHLORIDE
     Indication: Otitis media
     Dosage: 5 MILLIGRAM, ONCE DAILY (QD)
     Route: 048
     Dates: start: 20190107, end: 20190119
  2. XYZAL [Suspect]
     Active Substance: LEVOCETIRIZINE DIHYDROCHLORIDE
     Indication: Off label use
     Dosage: UNKNOWN DOSE
  3. XYZAL [Suspect]
     Active Substance: LEVOCETIRIZINE DIHYDROCHLORIDE
     Indication: Eczema
     Dosage: 200 UNK
     Route: 048
  4. CLARITHROMYCIN [Suspect]
     Active Substance: CLARITHROMYCIN
     Indication: Otitis media
     Dosage: 200 MILLIGRAM, ONCE DAILY (QD)
     Route: 048
     Dates: start: 20190107, end: 20190117
  5. CARBOCYSTEINE [Suspect]
     Active Substance: CARBOCYSTEINE
     Indication: Otitis media
     Dosage: 1500 MILLIGRAM, ONCE DAILY (QD)
     Dates: start: 20190107, end: 20190119
  6. CLOBETASOL [Concomitant]
     Active Substance: CLOBETASOL
     Indication: Otitis media
     Dosage: UNK

REACTIONS (7)
  - Rhabdomyolysis [Recovered/Resolved]
  - Rash [Recovered/Resolved]
  - Pyrexia [Recovered/Resolved]
  - Erythema [Recovered/Resolved]
  - Pruritus [Recovered/Resolved]
  - Toxic skin eruption [Recovered/Resolved]
  - Off label use [Unknown]

NARRATIVE: CASE EVENT DATE: 20190101
